FAERS Safety Report 4662677-5 (Version None)
Quarter: 2005Q2

REPORT INFORMATION
  Report Type: 
  Country: None (occurrence: None)
  Receive Date: 20050516
  Receipt Date: 20050111
  Transmission Date: 20051028
  Serious: Yes (Other)
  Sender: FDA-Public Use
  Company Number: US-GLAXOSMITHKLINE-A0540483A

PATIENT
  Age: 30 Year
  Sex: Female

DRUGS (1)
  1. LAMICTAL [Suspect]
     Indication: EPILEPSY

REACTIONS (3)
  - ALPHA 1 FOETOPROTEIN INCREASED [None]
  - GRAND MAL CONVULSION [None]
  - NORMAL DELIVERY [None]
